FAERS Safety Report 14527254 (Version 6)
Quarter: 2019Q3

REPORT INFORMATION
  Report Type: Report from Study
  Country: FR (occurrence: FR)
  Receive Date: 20180213
  Receipt Date: 20190819
  Transmission Date: 20191004
  Serious: Yes (Life-Threatening, Hospitalization)
  Sender: FDA-Public Use
  Company Number: FR-MYLANLABS-2018M1009614

PATIENT
  Age: 68 Year
  Sex: Female
  Weight: 92 kg

DRUGS (7)
  1. FLUOROURACIL. [Suspect]
     Active Substance: FLUOROURACIL
     Dosage: 1200 MILLIGRAM/SQ. METER, CYCLE (1200 MG/M2, CYCLE)
     Route: 065
     Dates: start: 20151218
  2. FOLINIC ACID [Concomitant]
     Active Substance: LEUCOVORIN
     Indication: PANCREATIC NEUROENDOCRINE TUMOUR
     Dosage: 1 DF, CYCLE
     Dates: start: 20151028, end: 20160311
  3. FLUOROURACIL. [Suspect]
     Active Substance: FLUOROURACIL
     Dosage: 400 MILLIGRAM/SQ. METER, CYCLE, D1, D14
     Route: 040
     Dates: start: 20151028, end: 20151204
  4. FOLINIC ACID [Concomitant]
     Active Substance: LEUCOVORIN
     Dosage: 400 MILLIGRAM/SQ. METER, CYCLE (400 MG/M2, CYCLE)
     Route: 065
     Dates: start: 20151028, end: 20160323
  5. ELOXATIN [Suspect]
     Active Substance: OXALIPLATIN
     Indication: PANCREATIC NEUROENDOCRINE TUMOUR
     Dosage: 85 MILLIGRAM/SQ. METER, CYCLE (85 MG/M2, CYCLIC:D1, D14)
     Route: 065
     Dates: start: 20151028
  6. FLUOROURACIL. [Suspect]
     Active Substance: FLUOROURACIL
     Indication: PANCREATIC NEUROENDOCRINE TUMOUR
     Dosage: 1 DF, CYCLE
     Route: 065
     Dates: start: 20151028
  7. FLUOROURACIL. [Suspect]
     Active Substance: FLUOROURACIL
     Dosage: 2400 MILLIGRAM/SQ. METER, CYCLE, D1, D14
     Route: 065
     Dates: start: 20151028, end: 20160311

REACTIONS (3)
  - Catheter site infection [Recovered/Resolved]
  - Diarrhoea [Recovered/Resolved]
  - Vomiting [Recovered/Resolved]

NARRATIVE: CASE EVENT DATE: 201512
